FAERS Safety Report 9198811 (Version 1)
Quarter: 2013Q1

REPORT INFORMATION
  Report Type: Spontaneous
  Country: FR (occurrence: FR)
  Receive Date: 20130329
  Receipt Date: 20130329
  Transmission Date: 20140127
  Serious: Yes (Hospitalization)
  Sender: FDA-Public Use
  Company Number: FR-SANOFI-AVENTIS-2013SA032444

PATIENT
  Age: 78 Year
  Sex: Male

DRUGS (9)
  1. CORDARONE [Suspect]
     Indication: PRODUCT USED FOR UNKNOWN INDICATION
     Dosage: FREQUENCY: 5 TIMES WEEKLY
     Route: 048
     Dates: start: 20121206
  2. KARDEGIC [Interacting]
     Indication: ANGINA PECTORIS
     Route: 048
     Dates: start: 20121106, end: 20121211
  3. PLAVIX [Interacting]
     Indication: ANGINA PECTORIS
     Route: 048
     Dates: start: 20121106, end: 20121211
  4. PRADAXA [Interacting]
     Indication: ATRIAL FIBRILLATION
     Dosage: STRENGTH: 110 MG
     Route: 048
     Dates: start: 20121206, end: 20121211
  5. LASILIX [Concomitant]
     Route: 048
     Dates: start: 20121206
  6. APROVEL [Concomitant]
     Route: 048
     Dates: start: 20121206
  7. TAHOR [Concomitant]
     Route: 048
  8. CARDENSIEL [Concomitant]
     Route: 048
  9. INEXIUM [Concomitant]
     Route: 048

REACTIONS (2)
  - Rectal haemorrhage [Recovered/Resolved]
  - Drug interaction [Recovered/Resolved]
